FAERS Safety Report 5324319-5 (Version None)
Quarter: 2007Q2

REPORT INFORMATION
  Report Type: 
  Country: None (occurrence: None)
  Receive Date: 20070514
  Receipt Date: 20070509
  Transmission Date: 20071010
  Serious: Yes (Death)
  Sender: FDA-Public Use
  Company Number: SE-BOEHRINGER INGELHEIM PHARMACEUTICALS, INC.-2007-DE-02817GD

PATIENT
  Age: 83 Year
  Sex: Male

DRUGS (2)
  1. DIPYRIDAMOLE [Suspect]
  2. WARFARIN SODIUM [Suspect]
     Indication: ATRIAL FIBRILLATION

REACTIONS (2)
  - CEREBRAL HAEMORRHAGE [None]
  - DRUG INTERACTION [None]
